FAERS Safety Report 13589618 (Version 2)
Quarter: 2017Q3

REPORT INFORMATION
  Report Type: Spontaneous
  Country: GB (occurrence: GB)
  Receive Date: 20170529
  Receipt Date: 20170706
  Transmission Date: 20171127
  Serious: Yes (Death, Hospitalization)
  Sender: FDA-Public Use
  Company Number: GB-DRREDDYS-GER/UKI/17/0090920

PATIENT
  Age: 46 Year
  Sex: Male

DRUGS (7)
  1. OMEPRAZOLE. [Concomitant]
     Active Substance: OMEPRAZOLE
     Indication: PRODUCT USED FOR UNKNOWN INDICATION
  2. SERTRALINE [Concomitant]
     Active Substance: SERTRALINE HYDROCHLORIDE
     Indication: PRODUCT USED FOR UNKNOWN INDICATION
     Dosage: INCREASED DOSE AFTER ADMISSION FOR SUICIDE ATTEMPT
  3. CELECOXIB. [Suspect]
     Active Substance: CELECOXIB
     Indication: PAIN
     Route: 048
     Dates: start: 20170426, end: 20170507
  4. OXYCODONE [Concomitant]
     Active Substance: OXYCODONE
     Indication: PRODUCT USED FOR UNKNOWN INDICATION
     Dosage: 3 HOURLY. NEWLY STARTED
     Dates: start: 20170426
  5. OXYCODONE [Concomitant]
     Active Substance: OXYCODONE
     Dosage: NEWLY STARTED; SUSTAINED RELEASE
     Dates: start: 20170426
  6. OLANZAPINE. [Suspect]
     Active Substance: OLANZAPINE
     Indication: ACUTE STRESS DISORDER
     Route: 048
     Dates: start: 20170426, end: 20170507
  7. PARACETAMOL [Concomitant]
     Active Substance: ACETAMINOPHEN
     Indication: PRODUCT USED FOR UNKNOWN INDICATION
     Dosage: NEWLY STARTED
     Dates: start: 20170426

REACTIONS (4)
  - Syncope [Recovered/Resolved]
  - Chest pain [Unknown]
  - Pulmonary embolism [Fatal]
  - Respiratory failure [Fatal]

NARRATIVE: CASE EVENT DATE: 20170503
